FAERS Safety Report 5284774-6 (Version None)
Quarter: 2007Q1

REPORT INFORMATION
  Report Type: 
  Country: None (occurrence: None)
  Receive Date: 20061229
  Receipt Date: 20060315
  Transmission Date: 20070707
  Serious: Yes (Death)
  Sender: FDA-Public Use
  Company Number: PHEH2006US03470

PATIENT
  Age: 93 Year
  Sex: Female

DRUGS (4)
  1. CLOZARIL [Suspect]
     Dosage: SEE IMAGE
     Dates: end: 20060310
  2. CLOZARIL [Suspect]
     Dosage: SEE IMAGE
     Dates: end: 20060310
  3. MORPHINE [Concomitant]
  4. TYLENOL [Concomitant]

REACTIONS (1)
  - DEATH [None]
